FAERS Safety Report 16820781 (Version 1)
Quarter: 2019Q3

REPORT INFORMATION
  Report Type: Report from Study
  Country: ZA (occurrence: ZA)
  Receive Date: 20190918
  Receipt Date: 20190918
  Transmission Date: 20191005
  Serious: Yes (Hospitalization, Other)
  Sender: FDA-Public Use
  Company Number: ZA-AUROBINDO-AUR-APL-2019-060075

PATIENT

DRUGS (4)
  1. EFAVIRENZ. [Suspect]
     Active Substance: EFAVIRENZ
     Indication: HIV INFECTION WHO CLINICAL STAGE III
     Dosage: 650 MILLIGRAM
     Route: 065
  2. EFAVIRENZ. [Suspect]
     Active Substance: EFAVIRENZ
     Dosage: UNK, RESTARTED AFTER 3 WEEKS
     Route: 065
  3. STAVUDINE. [Suspect]
     Active Substance: STAVUDINE
     Indication: HIV INFECTION WHO CLINICAL STAGE III
     Dosage: UNK
     Route: 065
  4. LAMIVUDINE. [Suspect]
     Active Substance: LAMIVUDINE
     Indication: HIV INFECTION WHO CLINICAL STAGE III
     Dosage: UNK
     Route: 065

REACTIONS (8)
  - Dysarthria [Recovered/Resolved]
  - Somnolence [Recovered/Resolved]
  - Neurotoxicity [Unknown]
  - Generalised tonic-clonic seizure [Recovered/Resolved]
  - Developmental regression [Unknown]
  - Overdose [Unknown]
  - Toxicity to various agents [Unknown]
  - Ataxia [Recovered/Resolved]
